FAERS Safety Report 10008848 (Version 2)
Quarter: 2014Q1

REPORT INFORMATION
  Report Type: Spontaneous
  Country: US (occurrence: US)
  Receive Date: 20140312
  Receipt Date: 20140312
  Transmission Date: 20141002
  Serious: No
  Sender: FDA-Public Use
  Company Number: US-INCYTE CORPORATION-2012IN000730

PATIENT
  Age: 66 Year
  Sex: Female
  Weight: 59.68 kg

DRUGS (11)
  1. JAKAFI [Suspect]
     Indication: CHRONIC MYELOMONOCYTIC LEUKAEMIA
     Dosage: 5 MG, BID (CUT 10 MG TABLET IN HALF, TWICE PER DAY)
     Route: 048
     Dates: start: 20120501
  2. JAKAFI [Suspect]
     Indication: POLYCYTHAEMIA VERA
     Dosage: 10 MG, TID
  3. JAKAFI [Suspect]
     Indication: MYELOFIBROSIS
  4. LEXAPRO [Concomitant]
  5. ATIVAN [Concomitant]
  6. FOSAMAX [Concomitant]
  7. CALCIUM W/VITAMIN D NOS [Concomitant]
  8. ATENOLOL [Concomitant]
  9. ALBUTEROL [Concomitant]
  10. FISH OIL [Concomitant]
  11. EXCEDRIN [Concomitant]

REACTIONS (11)
  - Macular degeneration [Not Recovered/Not Resolved]
  - Headache [Not Recovered/Not Resolved]
  - Diarrhoea [Not Recovered/Not Resolved]
  - Flatulence [Not Recovered/Not Resolved]
  - Pruritus generalised [Not Recovered/Not Resolved]
  - Eye pruritus [Not Recovered/Not Resolved]
  - Increased appetite [Unknown]
  - Medication error [None]
  - Eye pain [Unknown]
  - Platelet count decreased [Not Recovered/Not Resolved]
  - Dizziness [Unknown]
